FAERS Safety Report 10685330 (Version 1)
Quarter: 2014Q4

REPORT INFORMATION
  Report Type: Spontaneous
  Country: US (occurrence: US)
  Receive Date: 20141231
  Receipt Date: 20141231
  Transmission Date: 20150529
  Serious: No
  Sender: FDA-Public Use
  Company Number: US-ELI_LILLY_AND_COMPANY-US201412002070

PATIENT
  Age: 22 Year
  Sex: Male

DRUGS (1)
  1. CYMBALTA [Suspect]
     Active Substance: DULOXETINE HYDROCHLORIDE
     Indication: PRODUCT USED FOR UNKNOWN INDICATION
     Dosage: 120 MG, QD
     Route: 048

REACTIONS (4)
  - Nervousness [Recovered/Resolved]
  - Drug withdrawal syndrome [Recovered/Resolved]
  - Feeling abnormal [Recovered/Resolved]
  - Memory impairment [Recovered/Resolved]
